FAERS Safety Report 6564725-4 (Version None)
Quarter: 2010Q1

REPORT INFORMATION
  Report Type: 
  Country: None (occurrence: None)
  Receive Date: 20100201
  Receipt Date: 20100126
  Transmission Date: 20100710
  Serious: Yes (Hospitalization)
  Sender: FDA-Public Use
  Company Number: ES-CELGENEUS-144-21880-09111838

PATIENT
  Sex: Male
  Weight: 99 kg

DRUGS (13)
  1. REVLIMID [Suspect]
     Indication: MULTIPLE MYELOMA
     Route: 048
     Dates: start: 20091211
  2. REVLIMID [Suspect]
     Route: 048
     Dates: start: 20091102, end: 20091122
  3. REVLIMID [Suspect]
     Route: 048
     Dates: start: 20090902
  4. DEXAMETHASONE [Suspect]
     Indication: MULTIPLE MYELOMA
     Route: 048
     Dates: start: 20091211
  5. DEXAMETHASONE [Suspect]
     Route: 048
     Dates: start: 20091102, end: 20091129
  6. DEXAMETHASONE [Suspect]
     Route: 048
     Dates: start: 20090902
  7. ACENOCUMAROL [Concomitant]
     Indication: ATRIAL FIBRILLATION
     Route: 048
  8. ACICLOVIR [Concomitant]
     Indication: PROPHYLAXIS
     Route: 048
  9. ENALAPRIL MALEATE [Concomitant]
     Indication: HYPERTENSION
     Route: 048
  10. SEPTRIN FORTE [Concomitant]
     Indication: INFECTION PROPHYLAXIS
     Route: 048
     Dates: start: 20090902
  11. OSELTAMIVIR [Concomitant]
     Route: 048
     Dates: start: 20091102, end: 20091106
  12. OSELTAMIVIR [Concomitant]
     Route: 048
     Dates: start: 20091123, end: 20091124
  13. PREDNISONE [Concomitant]
     Indication: RESPIRATORY FAILURE
     Route: 048
     Dates: start: 20091102, end: 20091211

REACTIONS (3)
  - CARDIAC FAILURE [None]
  - NEUTROPENIA [None]
  - RESPIRATORY TRACT INFECTION [None]
